FAERS Safety Report 8027835-0 (Version None)
Quarter: 2012Q1

REPORT INFORMATION
  Report Type: 
  Country: None (occurrence: None)
  Receive Date: 20120104
  Receipt Date: 20111228
  Transmission Date: 20120608
  Serious: Yes (Hospitalization, Other)
  Sender: FDA-Public Use
  Company Number: ADR-2011-11857

PATIENT
  Sex: Male

DRUGS (2)
  1. LIORESAL [Suspect]
     Indication: MUSCLE SPASTICITY
     Dosage: 1560 MCG/DAY, INTRATH
     Route: 037
  2. LIORESAL [Suspect]
     Indication: SPINAL CORD INJURY
     Dosage: 1560 MCG/DAY, INTRATH
     Route: 037

REACTIONS (5)
  - UNDERDOSE [None]
  - FLUSHING [None]
  - FEELING ABNORMAL [None]
  - DRUG WITHDRAWAL SYNDROME [None]
  - CONFUSIONAL STATE [None]
